FAERS Safety Report 13127720 (Version 1)
Quarter: 2017Q1

REPORT INFORMATION
  Report Type: Spontaneous
  Country: US (occurrence: US)
  Receive Date: 20170118
  Receipt Date: 20170118
  Transmission Date: 20170428
  Serious: No
  Sender: FDA-Public Use
  Company Number: US-NOVOPROD-513013

PATIENT
  Age: 67 Year
  Sex: Female
  Weight: 58.5 kg

DRUGS (1)
  1. TRESIBA [Suspect]
     Active Substance: INSULIN DEGLUDEC
     Indication: TYPE 2 DIABETES MELLITUS
     Dosage: 16 U, QD
     Route: 058
     Dates: start: 201510

REACTIONS (2)
  - Gastritis [Recovering/Resolving]
  - Injection site mass [Not Recovered/Not Resolved]
